FAERS Safety Report 10681763 (Version 1)
Quarter: 2014Q4

REPORT INFORMATION
  Report Type: Spontaneous
  Country: US (occurrence: US)
  Receive Date: 20141230
  Receipt Date: 20141230
  Transmission Date: 20150529
  Serious: No
  Sender: FDA-Public Use
  Company Number: US-009507513-1412USA011207

PATIENT
  Age: 20 Year
  Sex: Female
  Weight: 68.27 kg

DRUGS (1)
  1. IMPLANON [Suspect]
     Active Substance: ETONOGESTREL
     Indication: CONTRACEPTION
     Dosage: DOSE UNKNOWN, FREQUENCY 3 YEARS
     Route: 059
     Dates: start: 20120213

REACTIONS (3)
  - Device dislocation [Unknown]
  - Pain in extremity [Unknown]
  - Implant site bruising [Unknown]

NARRATIVE: CASE EVENT DATE: 201412
